FAERS Safety Report 4506327-7 (Version None)
Quarter: 2004Q4

REPORT INFORMATION
  Report Type: 
  Country: None (occurrence: None)
  Receive Date: 20041025
  Receipt Date: 20040223
  Transmission Date: 20050328
  Serious: Yes (Other)
  Sender: FDA-Public Use
  Company Number: US-JNJFOC-20031200409

PATIENT
  Age: 48 Year
  Sex: Female
  Weight: 102.0593 kg

DRUGS (6)
  1. REMICADE [Suspect]
     Indication: COLITIS ULCERATIVE
     Dosage: 500 MG, INTRAVENOUS; 200 MG INTRAVENOUS
     Route: 042
     Dates: start: 20031029
  2. REMICADE [Suspect]
     Indication: COLITIS ULCERATIVE
     Dosage: 500 MG, INTRAVENOUS; 200 MG INTRAVENOUS
     Route: 042
     Dates: start: 20031112
  3. REMICADE [Suspect]
     Indication: COLITIS ULCERATIVE
     Dosage: 500 MG, INTRAVENOUS; 200 MG INTRAVENOUS
     Route: 042
     Dates: start: 20031209
  4. REMICADE [Suspect]
     Indication: COLITIS ULCERATIVE
     Dosage: 500 MG, INTRAVENOUS; 200 MG INTRAVENOUS
     Route: 042
     Dates: start: 20040121
  5. PREDNISONE [Concomitant]
  6. SULFASALAZINE [Concomitant]

REACTIONS (12)
  - ABDOMINAL PAIN UPPER [None]
  - ARTHRALGIA [None]
  - BODY TEMPERATURE INCREASED [None]
  - DYSPNOEA [None]
  - FATIGUE [None]
  - HEADACHE [None]
  - INFUSION RELATED REACTION [None]
  - JOINT SWELLING [None]
  - MOVEMENT DISORDER [None]
  - MUSCULOSKELETAL STIFFNESS [None]
  - PAIN IN EXTREMITY [None]
  - PARAESTHESIA [None]
